FAERS Safety Report 6759431-7 (Version None)
Quarter: 2010Q2

REPORT INFORMATION
  Report Type: 
  Country: None (occurrence: None)
  Receive Date: 20100607
  Receipt Date: 20100602
  Transmission Date: 20101027
  Serious: Yes (Hospitalization, Other)
  Sender: FDA-Public Use
  Company Number: US-B.I. PHARMACEUTICALS,INC./RIDGEFIELD-2010-BP-05809BP

PATIENT
  Age: 57 Year
  Sex: Female
  Weight: 54.43 kg

DRUGS (3)
  1. DULCOLAX [Suspect]
     Indication: PREOPERATIVE CARE
     Dosage: 50 MG
     Route: 048
     Dates: start: 20100420, end: 20100420
  2. SYNTHROID [Concomitant]
     Indication: HYPOTHYROIDISM
  3. NEXIUM [Concomitant]
     Indication: GASTROOESOPHAGEAL REFLUX DISEASE

REACTIONS (11)
  - ASTHENIA [None]
  - BLOOD CALCIUM DECREASED [None]
  - COMA [None]
  - CONVULSION [None]
  - DIZZINESS [None]
  - FATIGUE [None]
  - HYPONATRAEMIA [None]
  - INCOHERENT [None]
  - MEMORY IMPAIRMENT [None]
  - OXYGEN SATURATION DECREASED [None]
  - VISUAL IMPAIRMENT [None]
